FAERS Safety Report 16360133 (Version 1)
Quarter: 2019Q2

REPORT INFORMATION
  Report Type: Spontaneous
  Country: FR (occurrence: FR)
  Receive Date: 20190528
  Receipt Date: 20190528
  Transmission Date: 20190711
  Serious: Yes (Disabling)
  Sender: FDA-Public Use
  Company Number: FR-TEVA-2019-FR-1055435

PATIENT
  Age: 67 Year
  Sex: Male
  Weight: 93 kg

DRUGS (5)
  1. CLOPIDOGREL (BESILATE) [Suspect]
     Active Substance: CLOPIDOGREL BESILATE
     Indication: PROPHYLAXIS
     Dosage: 1 DOSAGE FORMS DAILY;
     Route: 048
     Dates: end: 20190226
  2. REPAGLINIDE. [Concomitant]
     Active Substance: REPAGLINIDE
  3. SITAGLIPTINE [Concomitant]
     Active Substance: SITAGLIPTIN
  4. RAMIPRIL. [Concomitant]
     Active Substance: RAMIPRIL
  5. METFORMINE [Concomitant]
     Active Substance: METFORMIN HYDROCHLORIDE

REACTIONS (1)
  - Subdural haematoma [Recovered/Resolved with Sequelae]

NARRATIVE: CASE EVENT DATE: 20190226
